FAERS Safety Report 7774909-5 (Version None)
Quarter: 2011Q3

REPORT INFORMATION
  Report Type: 
  Country: None (occurrence: None)
  Receive Date: 20110923
  Receipt Date: 20110920
  Transmission Date: 20111222
  Serious: Yes (Other)
  Sender: FDA-Public Use
  Company Number: JP-PFIZER INC-2011168965

PATIENT
  Age: 68 Year
  Sex: Male

DRUGS (4)
  1. DEXAMETHASONE [Concomitant]
     Dosage: UNK
     Route: 048
  2. CELECOXIB [Concomitant]
     Dosage: UNK
     Route: 048
  3. LYRICA [Suspect]
     Indication: PAIN
     Dosage: 50 MG, 2X/DAY
     Route: 048
     Dates: start: 20110209
  4. OXYCODONE [Concomitant]
     Dosage: UNK
     Route: 048

REACTIONS (2)
  - LOSS OF CONSCIOUSNESS [None]
  - FALL [None]
